FAERS Safety Report 15464676 (Version 1)
Quarter: 2018Q4

REPORT INFORMATION
  Report Type: Spontaneous
  Country: AU (occurrence: AU)
  Receive Date: 20181004
  Receipt Date: 20181004
  Transmission Date: 20190204
  Serious: Yes (Other)
  Sender: FDA-Public Use
  Company Number: AU-BEXIMCO-2018BEX00025

PATIENT
  Age: 55 Year
  Sex: Female

DRUGS (1)
  1. METFORMIN HYDROCHLORIDE. [Suspect]
     Active Substance: METFORMIN HYDROCHLORIDE
     Dosage: 132 G, ONCE
     Route: 065

REACTIONS (4)
  - Hypotension [Unknown]
  - Lactic acidosis [Unknown]
  - Intentional overdose [Recovered/Resolved]
  - Anuria [Recovered/Resolved]
